FAERS Safety Report 24297670 (Version 1)
Quarter: 2024Q3

REPORT INFORMATION
  Report Type: Spontaneous
  Country: US (occurrence: US)
  Receive Date: 20240909
  Receipt Date: 20240909
  Transmission Date: 20241017
  Serious: No
  Sender: DR REDDYS
  Company Number: US-DRL-USA-SPO/USA/24/0012872

PATIENT
  Age: 37 Year
  Sex: Female

DRUGS (3)
  1. CARBOPROST TROMETHAMINE [Suspect]
     Active Substance: CARBOPROST TROMETHAMINE
     Indication: Uterine leiomyoma
  2. EPINEPHRINE [Concomitant]
     Active Substance: EPINEPHRINE
     Indication: Uterine leiomyoma
     Dosage: INTO THE FIBROID
  3. LIDOCAINE [Concomitant]
     Active Substance: LIDOCAINE
     Indication: Uterine leiomyoma
     Dosage: INTO THE FIBROID

REACTIONS (1)
  - Product use in unapproved indication [Unknown]
